FAERS Safety Report 4274438-X (Version None)
Quarter: 2004Q1

REPORT INFORMATION
  Report Type: 
  Country: None (occurrence: None)
  Receive Date: 20040120
  Receipt Date: 20030718
  Transmission Date: 20041129
  Serious: Yes (Other)
  Sender: FDA-Public Use
  Company Number: US-BRISTOL-MYERS SQUIBB COMPANY-12332896

PATIENT

DRUGS (2)
  1. IFEX [Suspect]
  2. MESNA [Concomitant]

REACTIONS (2)
  - NEPHROPATHY TOXIC [None]
  - NEUROTOXICITY [None]
